FAERS Safety Report 20305697 (Version 1)
Quarter: 2022Q1

REPORT INFORMATION
  Report Type: Spontaneous
  Country: US (occurrence: None)
  Receive Date: 20220106
  Receipt Date: 20220106
  Transmission Date: 20220423
  Serious: Yes (Hospitalization)
  Sender: FDA-Public Use
  Company Number: None

PATIENT
  Age: 68 Year
  Sex: Female

DRUGS (1)
  1. TYMLOS [Suspect]
     Active Substance: ABALOPARATIDE
     Indication: Osteoporosis
     Dosage: FREQUENCY : DAILY;?
     Route: 058
     Dates: start: 20211221, end: 20211228

REACTIONS (6)
  - Angina unstable [None]
  - Hyperhidrosis [None]
  - Pain in jaw [None]
  - Therapy change [None]
  - Palpitations [None]
  - Pain in extremity [None]

NARRATIVE: CASE EVENT DATE: 20211221
